FAERS Safety Report 9524914 (Version 2)
Quarter: 2014Q4

REPORT INFORMATION
  Report Type: Report from Study
  Country: FR (occurrence: FR)
  Receive Date: 20130916
  Receipt Date: 20141112
  Transmission Date: 20150529
  Serious: Yes (Death, Hospitalization, Other)
  Sender: FDA-Public Use
  Company Number: FR-ASTELLAS-2013EU007868

PATIENT
  Age: 67 Year
  Sex: Male
  Weight: 119 kg

DRUGS (2)
  1. ENZALUTAMIDE [Suspect]
     Active Substance: ENZALUTAMIDE
     Indication: PROSTATE CANCER
     Route: 048
     Dates: start: 20130304, end: 20130328
  2. PREVISCAN                          /00789001/ [Concomitant]
     Active Substance: FLUINDIONE
     Indication: THROMBOSIS PROPHYLAXIS
     Route: 065
     Dates: start: 2010

REACTIONS (7)
  - Hyperkalaemia [Unknown]
  - Hypocalcaemia [Unknown]
  - Renal failure [Unknown]
  - Malignant neoplasm progression [Fatal]
  - Eastern Cooperative Oncology Group performance status worsened [Unknown]
  - Hepatic encephalopathy [Fatal]
  - Dyspnoea [Unknown]

NARRATIVE: CASE EVENT DATE: 20130329
